FAERS Safety Report 10683249 (Version 1)
Quarter: 2014Q4

REPORT INFORMATION
  Report Type: Spontaneous
  Country: US (occurrence: None)
  Receive Date: 20141210
  Receipt Date: 20141210
  Transmission Date: 20150529
  Serious: No
  Sender: FDA-Public Use
  Company Number: 20131010CINRY5149

PATIENT
  Age: 65 Year
  Sex: Male
  Weight: 103.4 kg

DRUGS (6)
  1. CINRYZE [Suspect]
     Active Substance: HUMAN C1-ESTERASE INHIBITOR
     Indication: HEREDITARY ANGIOEDEMA
     Route: 042
     Dates: start: 20120702
  2. PREDNISONE. [Concomitant]
     Active Substance: PREDNISONE
  3. FIRAZYR [Concomitant]
     Active Substance: ICATIBANT ACETATE
  4. CINRYZE [Suspect]
     Active Substance: HUMAN C1-ESTERASE INHIBITOR
     Indication: PROPHYLAXIS
     Route: 042
     Dates: start: 20120702
  5. DANAZOL. [Concomitant]
     Active Substance: DANAZOL
  6. BERINERT [Concomitant]
     Active Substance: HUMAN C1-ESTERASE INHIBITOR

REACTIONS (6)
  - Hereditary angioedema [None]
  - Mass [None]
  - Deep vein thrombosis [None]
  - Bone neoplasm [None]
  - Arthralgia [None]
  - Joint swelling [None]
